FAERS Safety Report 10306422 (Version 1)
Quarter: 2014Q3

REPORT INFORMATION
  Report Type: Spontaneous
  Country: US (occurrence: US)
  Receive Date: 20140715
  Receipt Date: 20140715
  Transmission Date: 20150326
  Serious: Yes (Hospitalization)
  Sender: FDA-Public Use
  Company Number: US-CREALTA PHARMACEUTICALS-2014S1000046

PATIENT
  Age: 79 Year
  Sex: Male
  Weight: 59.02 kg

DRUGS (3)
  1. OXANDRIN [Suspect]
     Active Substance: OXANDROLONE
     Indication: WEIGHT INCREASED
     Route: 048
  2. A BUNCH OF MULTIVITAMINS [Concomitant]
     Route: 048
  3. WARFARIN [Concomitant]
     Active Substance: WARFARIN
     Indication: ATRIAL FIBRILLATION
     Dosage: 1/2 MG 3 DAYS PER WEEK AND 1 MG 4 DAYS PER WEEK
     Route: 048

REACTIONS (3)
  - Diverticular perforation [None]
  - Diverticulitis [Recovered/Resolved]
  - Septic shock [Recovered/Resolved]

NARRATIVE: CASE EVENT DATE: 2006
